FAERS Safety Report 5709717-X (Version None)
Quarter: 2008Q2

REPORT INFORMATION
  Report Type: 
  Country: None (occurrence: None)
  Receive Date: 20080418
  Receipt Date: 20080407
  Transmission Date: 20081010
  Serious: Yes (Hospitalization)
  Sender: FDA-Public Use
  Company Number: US-AMGEN-QUU272495

PATIENT
  Sex: Female
  Weight: 79.5 kg

DRUGS (2)
  1. ENBREL [Suspect]
     Indication: RHEUMATOID ARTHRITIS
     Route: 058
     Dates: start: 20020101
  2. METHOTREXATE [Concomitant]

REACTIONS (6)
  - DELUSION [None]
  - DRUG HYPERSENSITIVITY [None]
  - ESSENTIAL TREMOR [None]
  - LOSS OF CONSCIOUSNESS [None]
  - PARANASAL SINUS HYPERSECRETION [None]
  - RESPIRATORY FAILURE [None]
